FAERS Safety Report 5341622-3 (Version None)
Quarter: 2007Q2

REPORT INFORMATION
  Report Type: 
  Country: None (occurrence: None)
  Receive Date: 20070530
  Receipt Date: 20070504
  Transmission Date: 20071010
  Serious: Yes (Hospitalization)
  Sender: FDA-Public Use
  Company Number: 6033164

PATIENT
  Age: 73 Year
  Sex: Male

DRUGS (7)
  1. METFORMIN HCL [Suspect]
     Indication: DIABETES MELLITUS
     Dosage: 3 GM (1 GM, 3 IN 1 D) ORAL
     Route: 048
     Dates: end: 20060525
  2. OMEPRAZOLE [Suspect]
     Dosage: 40 MG (40 MG, 1 D) ORAL
     Route: 048
     Dates: start: 20060517, end: 20060522
  3. LIPITOR [Suspect]
     Indication: METABOLIC DISORDER
     Dosage: 40 MG (40 MG, 1 D) ORAL
     Route: 048
     Dates: end: 20060525
  4. TIMENTIN (INJECTION) (TICARCILLIN  DISODIUM, CLAVULANIC ACID) [Suspect]
     Indication: DRUG USE FOR UNKNOWN INDICATION
     Dosage: 12, 4 G, 1 D) INTRAVENOUS (NOT OTHERWISE SPECIFIED)
     Route: 042
     Dates: start: 20060520, end: 20060523
  5. AMOXYCILLIN SODIUM (TABLET) (AMOXICILLIN) [Suspect]
     Indication: DRUG USE FOR UNKNOWN INDICATION
     Dosage: 2 GM (2 GM, 1 D) ORAL
     Route: 048
     Dates: start: 20060517, end: 20060522
  6. KLACID (CAPSULE) (CLARITHROMYCIN) [Suspect]
     Indication: DRUG USE FOR UNKNOWN INDICATION
     Dosage: 1 GM (1 GM, 1 IN 1 D) ORAL
     Route: 048
     Dates: start: 20060517, end: 20060522
  7. DIAMICRON (TABLET) (GLICLAZIDE) [Suspect]
     Indication: METABOLIC DISORDER
     Dosage: 240 MG (240 MG, 1 D) ORAL
     Route: 048
     Dates: end: 20060525

REACTIONS (1)
  - PERIVASCULAR DERMATITIS [None]
